FAERS Safety Report 15117241 (Version 3)
Quarter: 2019Q1

REPORT INFORMATION
  Report Type: Spontaneous
  Country: US (occurrence: US)
  Receive Date: 20180706
  Receipt Date: 20190130
  Transmission Date: 20190417
  Serious: Yes (Other)
  Sender: FDA-Public Use
  Company Number: US-DSJP-DSU-2016-119144

PATIENT

DRUGS (7)
  1. VENLAFAXINE [Concomitant]
     Active Substance: VENLAFAXINE HYDROCHLORIDE
     Dosage: 37.5 MG, QD
     Route: 048
  2. BENICAR [Suspect]
     Active Substance: OLMESARTAN MEDOXOMIL
     Indication: HYPERTENSION
     Dosage: 20 MG, QD
     Route: 048
     Dates: end: 20150715
  3. TOPAMAX [Concomitant]
     Active Substance: TOPIRAMATE
     Indication: PRODUCT USED FOR UNKNOWN INDICATION
     Dosage: 25 MG, QD
  4. BENICAR [Suspect]
     Active Substance: OLMESARTAN MEDOXOMIL
     Indication: DIABETES MELLITUS
  5. ASPRIN [Concomitant]
     Active Substance: ASPIRIN
     Indication: FIBROMYALGIA
     Dosage: 81 MG, QD
     Route: 048
  6. VENLAFAXINE [Concomitant]
     Active Substance: VENLAFAXINE HYDROCHLORIDE
     Indication: DEPRESSION
     Dosage: 150 MG, QD
     Route: 048
  7. PROTONIX [Concomitant]
     Active Substance: PANTOPRAZOLE SODIUM
     Indication: GASTROOESOPHAGEAL REFLUX DISEASE
     Dosage: 20 MG, QD
     Route: 048

REACTIONS (12)
  - Acute kidney injury [Not Recovered/Not Resolved]
  - Rash macular [Unknown]
  - Skin lesion [Unknown]
  - Irritable bowel syndrome [Not Recovered/Not Resolved]
  - Volvulus [Unknown]
  - Anaemia [Unknown]
  - Diverticulitis [Not Recovered/Not Resolved]
  - Rash [Unknown]
  - Off label use [Unknown]
  - Lip ulceration [Unknown]
  - Sprue-like enteropathy [Recovering/Resolving]
  - Facial pain [Unknown]

NARRATIVE: CASE EVENT DATE: 2011
